FAERS Safety Report 7275400-5 (Version None)
Quarter: 2011Q1

REPORT INFORMATION
  Report Type: 
  Country: None (occurrence: None)
  Receive Date: 20110204
  Receipt Date: 20110203
  Transmission Date: 20110831
  Serious: Yes (Hospitalization, Other)
  Sender: FDA-Public Use
  Company Number: BR-ABBOTT-10P-020-0693455-00

PATIENT
  Sex: Female
  Weight: 61 kg

DRUGS (7)
  1. NIMESULIDE [Concomitant]
     Indication: ARTHRALGIA
     Route: 048
     Dates: start: 20020101, end: 20100101
  2. DICLOFENAC SODIUM [Concomitant]
     Indication: RHEUMATOID ARTHRITIS
     Route: 048
     Dates: start: 20020101
  3. MODURETIC 5-50 [Concomitant]
     Indication: HYPERTENSION
     Route: 048
     Dates: start: 20020101
  4. METHOTREXATE [Concomitant]
     Indication: RHEUMATOID ARTHRITIS
     Route: 048
     Dates: start: 20020101
  5. HUMIRA [Suspect]
     Indication: RHEUMATOID ARTHRITIS
     Route: 058
     Dates: start: 20100301
  6. PREDNISONE [Concomitant]
     Indication: RHEUMATOID ARTHRITIS
     Route: 048
     Dates: start: 20020101
  7. ZEXIN [Concomitant]
     Indication: BLOOD CHOLESTEROL ABNORMAL
     Route: 048
     Dates: start: 20090101, end: 20100101

REACTIONS (7)
  - OSTEOPOROSIS [None]
  - BONE EROSION [None]
  - PROCEDURAL PAIN [None]
  - BLOOD CHOLESTEROL INCREASED [None]
  - ANAEMIA [None]
  - PAIN IN EXTREMITY [None]
  - TACHYCARDIA [None]
